FAERS Safety Report 17594305 (Version 1)
Quarter: 2020Q1

REPORT INFORMATION
  Report Type: Report from Study
  Country: US (occurrence: US)
  Receive Date: 20200327
  Receipt Date: 20200327
  Transmission Date: 20200409
  Serious: Yes (Other)
  Sender: FDA-Public Use
  Company Number: US-BRISTOL-MYERS SQUIBB COMPANY-BMS-2020-009785

PATIENT
  Age: 55 Year
  Sex: Female
  Weight: 71.2 kg

DRUGS (2)
  1. NIVOLUMAB [Suspect]
     Active Substance: NIVOLUMAB
     Indication: OVARIAN GRANULOSA CELL TUMOUR
     Dosage: 240 MILLIGRAM
     Route: 042
     Dates: start: 20180319, end: 20200122
  2. IPILIMUMAB [Suspect]
     Active Substance: IPILIMUMAB
     Indication: OVARIAN GRANULOSA CELL TUMOUR
     Dosage: 1 MILLIGRAM/KILOGRAM
     Route: 042
     Dates: start: 20180319, end: 20180809

REACTIONS (3)
  - Blood creatinine increased [Not Recovered/Not Resolved]
  - Immune-mediated nephritis [Unknown]
  - Optic neuritis [Unknown]

NARRATIVE: CASE EVENT DATE: 20180809
